FAERS Safety Report 7348423-5 (Version None)
Quarter: 2011Q1

REPORT INFORMATION
  Report Type: 
  Country: None (occurrence: None)
  Receive Date: 20110311
  Receipt Date: 20110309
  Transmission Date: 20110831
  Serious: Yes (Life-Threatening, Hospitalization)
  Sender: FDA-Public Use
  Company Number: JP-PFIZER INC-2011018056

PATIENT
  Age: 86 Year
  Sex: Male
  Weight: 58 kg

DRUGS (8)
  1. ADALAT CC [Concomitant]
     Indication: HYPERTENSION
     Dosage: 20 MG, 1X/DAY
     Route: 048
     Dates: end: 20101104
  2. FENTANYL [Concomitant]
     Indication: POST HERPETIC NEURALGIA
     Dosage: 4.2 MG, EVERY 72 HOURS
     Route: 062
     Dates: start: 20100801, end: 20101104
  3. LYRICA [Suspect]
     Dosage: 150 MG, 2X/DAY
     Route: 048
     Dates: start: 20100701, end: 20101104
  4. MICARDIS [Concomitant]
     Indication: HYPERTENSION
     Dosage: 40 MG, 1X/DAY
     Route: 048
     Dates: end: 20101104
  5. FENTANYL [Concomitant]
     Dosage: 2.1 MG, EVERY 72 HOURS
     Route: 062
     Dates: start: 20100801, end: 20101104
  6. PRIMPERAN TAB [Concomitant]
     Indication: NAUSEA
     Dosage: 5 MG, 3X/DAY
     Route: 048
     Dates: start: 20100929, end: 20101104
  7. LYRICA [Suspect]
     Indication: POST HERPETIC NEURALGIA
     Dosage: 150 MG, 1X/DAY
     Route: 048
     Dates: start: 20100629, end: 20100701
  8. VALTREX [Concomitant]
     Indication: HERPES ZOSTER
     Dosage: UNK
     Dates: start: 20100104

REACTIONS (4)
  - PANCYTOPENIA [None]
  - PNEUMONIA [None]
  - DISSEMINATED INTRAVASCULAR COAGULATION [None]
  - FEBRILE NEUTROPENIA [None]
